FAERS Safety Report 18356280 (Version 1)
Quarter: 2020Q4

REPORT INFORMATION
  Report Type: Spontaneous
  Country: AT (occurrence: AT)
  Receive Date: 20201007
  Receipt Date: 20201007
  Transmission Date: 20210114
  Serious: Yes (Life-Threatening, Hospitalization, Other)
  Sender: FDA-Public Use
  Company Number: AT-SUN PHARMACEUTICAL INDUSTRIES LTD-2020RR-263629

PATIENT
  Age: 32 Year
  Sex: Male

DRUGS (15)
  1. VALPROIC ACID. [Interacting]
     Active Substance: VALPROIC ACID
     Dosage: 2400 MG DAILY/FREQUENCY UNKNOWN ()
     Route: 042
  2. LEVETIRACETAM. [Suspect]
     Active Substance: LEVETIRACETAM
     Indication: GENERALISED TONIC-CLONIC SEIZURE
     Dosage: 3000 MG DAILY/FREQUENCY UNKNOWN ()
     Route: 065
  3. SERTRALINE [Concomitant]
     Active Substance: SERTRALINE HYDROCHLORIDE
     Indication: BORDERLINE PERSONALITY DISORDER
     Dosage: 50 MG DAILY, FREQUENCY UNKNOWN ()
     Route: 065
  4. QUETIAPINE. [Suspect]
     Active Substance: QUETIAPINE
     Dosage: DOSE UNKNOWN (INTENTIONAL OVERDOSE) ()
     Route: 065
  5. RUFINAMIDE [Interacting]
     Active Substance: RUFINAMIDE
     Indication: PARTIAL SEIZURES
     Dosage: 2000 MG DAILY/FREQUENCY UNKNOWN ()
     Route: 048
  6. PERAMPANEL [Suspect]
     Active Substance: PERAMPANEL
     Dosage: DOSE UNKNOWN (INTENTIONAL OVERDOSE) ()
     Route: 048
  7. QUETIAPINE. [Suspect]
     Active Substance: QUETIAPINE
     Indication: BORDERLINE PERSONALITY DISORDER
     Dosage: 300 MG DAILY, FREQUENCY UNKNOWN ()
     Route: 065
  8. VALPROIC ACID. [Interacting]
     Active Substance: VALPROIC ACID
     Indication: GENERALISED TONIC-CLONIC SEIZURE
     Dosage: REDUCED DOSE AND FREQUENCY UNKNOWN ()
     Route: 048
  9. PERAMPANEL [Suspect]
     Active Substance: PERAMPANEL
     Indication: PARTIAL SEIZURES
     Dosage: 8 MILLIGRAM, DAILY
     Route: 048
  10. CLOBAZAM. [Concomitant]
     Active Substance: CLOBAZAM
     Indication: GENERALISED TONIC-CLONIC SEIZURE
     Dosage: 40 MG DAILY/FREQUENCY UNKNOWN ()
     Route: 065
  11. LEVETIRACETAM. [Suspect]
     Active Substance: LEVETIRACETAM
     Dosage: DOSE UNKNOWN (INTENTIONAL OVERDOSE) ()
     Route: 065
  12. RUFINAMIDE [Interacting]
     Active Substance: RUFINAMIDE
     Dosage: 2400 MILLIGRAM, DAILY
     Route: 048
  13. CITALOPRAM [Concomitant]
     Active Substance: CITALOPRAM HYDROBROMIDE
     Indication: BORDERLINE PERSONALITY DISORDER
     Dosage: 10 MG DAILY, FREQUENCY UNKNOWN ()
     Route: 065
  14. QUETIAPINE. [Suspect]
     Active Substance: QUETIAPINE
     Dosage: 500 MG (FREQUENCY UNKNOWN). ()
     Route: 065
  15. CHLORPROTHIXENE [Concomitant]
     Active Substance: CHLORPROTHIXENE
     Indication: PRODUCT USED FOR UNKNOWN INDICATION
     Dosage: ()AS NECESSARY
     Route: 065

REACTIONS (13)
  - Leukopenia [Recovered/Resolved]
  - Nystagmus [Unknown]
  - Nausea [Unknown]
  - Suicide attempt [Recovering/Resolving]
  - Vomiting [Unknown]
  - Delirium [Recovered/Resolved]
  - Toxicity to various agents [Recovered/Resolved]
  - Anticonvulsant drug level increased [Unknown]
  - Thrombocytopenia [Recovered/Resolved]
  - Aggression [Unknown]
  - Dizziness [Unknown]
  - Intentional overdose [Recovered/Resolved]
  - Drug interaction [Unknown]
